FAERS Safety Report 6980177-4 (Version None)
Quarter: 2010Q3

REPORT INFORMATION
  Report Type: 
  Country: None (occurrence: None)
  Receive Date: 20100914
  Receipt Date: 20100831
  Transmission Date: 20110219
  Serious: Yes (Hospitalization)
  Sender: FDA-Public Use
  Company Number: GB-RB-014884-2010

PATIENT
  Sex: Male

DRUGS (3)
  1. SUBOXONE [Suspect]
     Indication: PRODUCT USED FOR UNKNOWN INDICATION
     Dosage: DOSING DETAILS UNKNOWN.
     Route: 060
  2. SUBOXONE [Suspect]
     Route: 060
  3. SUBOXONE [Suspect]
     Dosage: ONE DOSE
     Route: 045

REACTIONS (2)
  - INTENTIONAL DRUG MISUSE [None]
  - MENTAL DISORDER [None]
